FAERS Safety Report 4280690-7 (Version None)
Quarter: 2004Q1

REPORT INFORMATION
  Report Type: 
  Country: None (occurrence: None)
  Receive Date: 20040127
  Receipt Date: 20040113
  Transmission Date: 20041129
  Serious: No
  Sender: FDA-Public Use
  Company Number: 04H-163-0247688-00

PATIENT
  Age: 57 Year
  Sex: Female

DRUGS (3)
  1. MORPHINE SULFATE INJ [Suspect]
     Indication: NAUSEA
     Dosage: 4 MG, ONCE, INTRAVENOUS
     Route: 042
     Dates: start: 20031206, end: 20031206
  2. MORPHINE SULFATE INJ [Suspect]
     Indication: PAIN
     Dosage: 4 MG, ONCE, INTRAVENOUS
     Route: 042
     Dates: start: 20031206, end: 20031206
  3. ONDANSETRON HCL [Suspect]
     Indication: VOMITING
     Dosage: ONCE, INTRAVENOUS
     Route: 042
     Dates: start: 20031206, end: 20031206

REACTIONS (3)
  - CHEST DISCOMFORT [None]
  - FLUSHING [None]
  - HYPERVENTILATION [None]
